FAERS Safety Report 16952855 (Version 2)
Quarter: 2019Q4

REPORT INFORMATION
  Report Type: Spontaneous
  Country: CN (occurrence: CN)
  Receive Date: 20191023
  Receipt Date: 20191025
  Transmission Date: 20200122
  Serious: Yes (Death, Other)
  Sender: FDA-Public Use
  Company Number: CN-ROCHE-2322486

PATIENT
  Age: 32 Year
  Sex: Male

DRUGS (15)
  1. RITUXIMAB. [Suspect]
     Active Substance: RITUXIMAB
     Route: 041
     Dates: start: 20170515, end: 20180720
  2. IFOSFAMIDE. [Concomitant]
     Active Substance: IFOSFAMIDE
     Indication: B-CELL LYMPHOMA
     Dosage: FORM DAY 1 TO DAY 4
     Route: 065
     Dates: start: 20160602
  3. DEXAMETHASONE. [Concomitant]
     Active Substance: DEXAMETHASONE
     Indication: B-CELL LYMPHOMA
     Dosage: FORM DAY 1 TO DAY 4
     Route: 065
     Dates: start: 20160602
  4. BENDAMUSTINE HYDROCHLORIDE. [Concomitant]
     Active Substance: BENDAMUSTINE HYDROCHLORIDE
     Indication: B-CELL LYMPHOMA
     Dosage: FORM DAY 1 TO DAY 2
     Route: 065
     Dates: start: 20160913
  5. CYCLOPHOSPHAMIDE. [Concomitant]
     Active Substance: CYCLOPHOSPHAMIDE
     Indication: B-CELL LYMPHOMA
     Dosage: DAY1
     Route: 065
     Dates: start: 20160226
  6. THALIDOMIDE [Concomitant]
     Active Substance: THALIDOMIDE
     Indication: B-CELL LYMPHOMA
     Dosage: DAY1
     Route: 048
     Dates: start: 20160412
  7. ETOPOSIDE. [Concomitant]
     Active Substance: ETOPOSIDE
     Indication: B-CELL LYMPHOMA
     Dosage: FORM DAY1 TO DAY4
     Route: 065
     Dates: start: 20160602
  8. GEMCITABINE. [Concomitant]
     Active Substance: GEMCITABINE
     Indication: B-CELL LYMPHOMA
     Dosage: DAY 1; DAY 8
     Route: 065
     Dates: start: 20160715
  9. OXALIPLATIN. [Concomitant]
     Active Substance: OXALIPLATIN
     Indication: B-CELL LYMPHOMA
     Dosage: DAY1
     Route: 065
     Dates: start: 20160715
  10. RITUXIMAB. [Suspect]
     Active Substance: RITUXIMAB
     Indication: B-CELL LYMPHOMA
     Dosage: DAY 0
     Route: 041
     Dates: start: 20160226
  11. VINCRISTINE [Concomitant]
     Active Substance: VINCRISTINE
     Indication: B-CELL LYMPHOMA
     Dosage: DAY1
     Route: 065
     Dates: start: 20160226
  12. PREDNISONE. [Concomitant]
     Active Substance: PREDNISONE
     Indication: B-CELL LYMPHOMA
     Dosage: FORM DAY1 TO DAY5
     Route: 065
     Dates: start: 20160226
  13. THALIDOMIDE [Concomitant]
     Active Substance: THALIDOMIDE
     Route: 048
     Dates: start: 20170515, end: 20180720
  14. PIRARUBICIN [Concomitant]
     Active Substance: PIRARUBICIN
     Indication: B-CELL LYMPHOMA
     Dosage: DAY1
     Route: 065
     Dates: start: 20160226
  15. CISPLATIN. [Concomitant]
     Active Substance: CISPLATIN
     Indication: B-CELL LYMPHOMA
     Dosage: FORM DAY 1 TO DAY 4
     Route: 065
     Dates: start: 20160602

REACTIONS (2)
  - Death [Fatal]
  - Bone marrow failure [Unknown]
